FAERS Safety Report 16645926 (Version 1)
Quarter: 2019Q3

REPORT INFORMATION
  Report Type: Report from Study
  Country: None (occurrence: CO)
  Receive Date: 20190730
  Receipt Date: 20190730
  Transmission Date: 20191004
  Serious: Yes (Other)
  Sender: FDA-Public Use
  Company Number: CO-ABBVIE-19K-036-2871672-00

PATIENT
  Age: 28 Year
  Sex: Female

DRUGS (1)
  1. HUMIRA [Suspect]
     Active Substance: ADALIMUMAB
     Indication: HIDRADENITIS
     Route: 058
     Dates: start: 20180118

REACTIONS (4)
  - Tooth loss [Unknown]
  - Pulpitis dental [Unknown]
  - Procedural haemorrhage [Recovered/Resolved]
  - Tooth injury [Recovered/Resolved]

NARRATIVE: CASE EVENT DATE: 201907
